FAERS Safety Report 5473602-1 (Version None)
Quarter: 2007Q4

REPORT INFORMATION
  Report Type: 
  Country: None (occurrence: None)
  Receive Date: 20071001
  Receipt Date: 20040512
  Transmission Date: 20080405
  Serious: Yes (Hospitalization, Other)
  Sender: FDA-Public Use
  Company Number: US-PFIZER INC-2004210423US

PATIENT
  Sex: Female

DRUGS (3)
  1. ALPRAZOLAM [Suspect]
     Indication: EAR DISORDER
  2. ALPRAZOLAM [Suspect]
     Indication: BALANCE DISORDER
  3. LEXAPRO [Concomitant]

REACTIONS (4)
  - AMNESIA [None]
  - DRUG WITHDRAWAL CONVULSIONS [None]
  - SUICIDAL IDEATION [None]
  - TINNITUS [None]
